FAERS Safety Report 15882364 (Version 1)
Quarter: 2019Q1

REPORT INFORMATION
  Report Type: Spontaneous
  Country: US (occurrence: US)
  Receive Date: 20190129
  Receipt Date: 20190129
  Transmission Date: 20190417
  Serious: No
  Sender: FDA-Public Use
  Company Number: US-SHIRE-US201902551

PATIENT

DRUGS (2)
  1. KALBITOR [Suspect]
     Active Substance: ECALLANTIDE
     Indication: HEREDITARY ANGIOEDEMA
     Dosage: 30 MILLIGRAM, INJECTION
     Route: 050
  2. TAKHZYRO [Suspect]
     Active Substance: LANADELUMAB-FLYO
     Indication: HEREDITARY ANGIOEDEMA
     Route: 065

REACTIONS (7)
  - Hereditary angioedema [Unknown]
  - Erythema [Unknown]
  - Flushing [Unknown]
  - Dyspnoea [Unknown]
  - Condition aggravated [Unknown]
  - Asthma [Unknown]
  - Drug ineffective [Unknown]
